FAERS Safety Report 4774035-3 (Version None)
Quarter: 2005Q3

REPORT INFORMATION
  Report Type: 
  Country: None (occurrence: None)
  Receive Date: 20050920
  Receipt Date: 20050816
  Transmission Date: 20060218
  Serious: Yes (Death, Hospitalization)
  Sender: FDA-Public Use
  Company Number: US-BRISTOL-MYERS SQUIBB COMPANY-13094461

PATIENT
  Age: 81 Year
  Sex: Female

DRUGS (14)
  1. ERBITUX [Suspect]
     Indication: PANCREATIC CARCINOMA
     Dosage: THERAPY START DATE 27-JUL-05, GIVEN AT 400 MG/M2 X 1 THEN 250 MG/M2 WEEKLY
     Route: 042
     Dates: start: 20050809, end: 20050809
  2. GEMCITABINE [Suspect]
     Indication: PANCREATIC CARCINOMA
     Dosage: THERAPY START DATE 02-AUG-05.
     Route: 042
     Dates: start: 20050812, end: 20050812
  3. RADIATION THERAPY [Suspect]
     Indication: PANCREATIC CARCINOMA
     Dosage: 1544 CGY, START DATE 02-AUG-05. 8 OF 28 DOSES.
     Dates: start: 20050814, end: 20050814
  4. ATIVAN [Concomitant]
     Route: 048
  5. DARVON [Concomitant]
     Dosage: 65 MG, 1-2 CAPSULES EVERY 6 HOURS AS NEEDED
  6. PROTONIX [Concomitant]
     Dosage: TAKEN AT HS (BEDTIME)
     Route: 048
  7. MULTIVITAMIN [Concomitant]
     Dosage: DOSAGE FORM = TABLET
     Route: 048
  8. VERAPAMIL SR [Concomitant]
     Route: 048
  9. ENALAPRIL MALEATE [Concomitant]
     Route: 048
  10. NOVOLIN N [Concomitant]
     Dosage: 30 UNITS AM; 20 UNITS PM OR AS DIRECTED
     Route: 058
  11. NYSTATIN [Concomitant]
     Dosage: 1000,000 UNITS/G
     Route: 061
  12. FUROSEMIDE [Concomitant]
     Dosage: 20 MG, 2 IN AM, 1 IN PM
     Route: 048
  13. AMITRIPTYLINE HCL [Concomitant]
     Dosage: TAKEN AT HS (BEDTIME)
     Route: 048
  14. SENNA-S [Concomitant]
     Route: 048

REACTIONS (3)
  - CEREBROVASCULAR ACCIDENT [None]
  - FEBRILE NEUTROPENIA [None]
  - SEPSIS [None]
